FAERS Safety Report 10237801 (Version 2)
Quarter: 2014Q3

REPORT INFORMATION
  Report Type: Report from Study
  Country: US (occurrence: US)
  Receive Date: 20140616
  Receipt Date: 20140709
  Transmission Date: 20150326
  Serious: Yes (Hospitalization, Other)
  Sender: FDA-Public Use
  Company Number: US-ALEXION-A201305285

PATIENT

DRUGS (1)
  1. SOLIRIS [Suspect]
     Active Substance: ECULIZUMAB
     Indication: HAEMOLYTIC URAEMIC SYNDROME
     Dosage: UNK
     Route: 042
     Dates: start: 201310

REACTIONS (5)
  - Renal impairment [Unknown]
  - Antibiotic therapy [Unknown]
  - Asthenia [Unknown]
  - Unevaluable event [Unknown]
  - Haemodialysis [Unknown]

NARRATIVE: CASE EVENT DATE: 201310
